FAERS Safety Report 8074099-8 (Version None)
Quarter: 2012Q1

REPORT INFORMATION
  Report Type: 
  Country: None (occurrence: None)
  Receive Date: 20120119
  Receipt Date: 20120111
  Transmission Date: 20120608
  Serious: No
  Sender: FDA-Public Use
  Company Number: TCI2012A00084

PATIENT
  Age: 79 Year
  Sex: Male

DRUGS (3)
  1. ACTOS [Suspect]
     Indication: DIABETES MELLITUS
     Dosage: 15 MG (15 MG, 1 D)
     Route: 048
     Dates: start: 20040302
  2. BASEN (VOGLIBOSE) [Concomitant]
  3. CELTECT (OXATOMIDE) [Concomitant]

REACTIONS (1)
  - BLADDER CANCER [None]
